FAERS Safety Report 10264705 (Version 1)
Quarter: 2014Q2

REPORT INFORMATION
  Report Type: Spontaneous
  Country: US (occurrence: US)
  Receive Date: 20140627
  Receipt Date: 20140627
  Transmission Date: 20141212
  Serious: No
  Sender: FDA-Public Use
  Company Number: US-GLAXOSMITHKLINE-A1073868A

PATIENT
  Age: 79 Year
  Sex: Male

DRUGS (2)
  1. TAFINLAR [Suspect]
     Indication: METASTATIC MALIGNANT MELANOMA
     Dosage: 75MG UNKNOWN
     Route: 065
     Dates: start: 20140510
  2. MEKINIST [Suspect]
     Indication: METASTATIC MALIGNANT MELANOMA
     Dosage: 2MG UNKNOWN
     Route: 065
     Dates: start: 20140510

REACTIONS (6)
  - Dyspnoea [Unknown]
  - Vomiting [Unknown]
  - Feeling hot [Unknown]
  - Pyrexia [Unknown]
  - Tremor [Unknown]
  - Chills [Unknown]
